FAERS Safety Report 6115559-6 (Version None)
Quarter: 2009Q1

REPORT INFORMATION
  Report Type: 
  Country: None (occurrence: None)
  Receive Date: 20090313
  Receipt Date: 20090303
  Transmission Date: 20090719
  Serious: Yes (Other)
  Sender: FDA-Public Use
  Company Number: PHEH2009US02223

PATIENT
  Sex: Male

DRUGS (2)
  1. GLEEVEC [Suspect]
     Indication: CHRONIC MYELOID LEUKAEMIA
     Dosage: 400 MG, QD
  2. GLEEVEC [Suspect]
     Dosage: 400 MG, BID

REACTIONS (2)
  - NO THERAPEUTIC RESPONSE [None]
  - PLASMA CELLS INCREASED [None]
